FAERS Safety Report 8300720-2 (Version None)
Quarter: 2012Q2

REPORT INFORMATION
  Report Type: 
  Country: None (occurrence: None)
  Receive Date: 20120419
  Receipt Date: 20120419
  Transmission Date: 20120825
  Serious: Yes (Other)
  Sender: FDA-Public Use
  Company Number: None

PATIENT
  Age: 37 Year
  Sex: Female
  Weight: 100.2 kg

DRUGS (1)
  1. QUETIAPINE [Suspect]
     Indication: SCHIZOAFFECTIVE DISORDER
     Dosage: 1000MG MG EVERY DAY PO
     Route: 048
     Dates: start: 20000901, end: 20120309

REACTIONS (2)
  - WEIGHT INCREASED [None]
  - HYPERGLYCAEMIA [None]
